FAERS Safety Report 18811990 (Version 4)
Quarter: 2021Q2

REPORT INFORMATION
  Report Type: Report from Study
  Country: None (occurrence: EE)
  Receive Date: 20210129
  Receipt Date: 20210505
  Transmission Date: 20210717
  Serious: Yes (Hospitalization, Other)
  Sender: FDA-Public Use
  Company Number: EE-ABBVIE-21P-221-3740829-00

PATIENT
  Age: 68 Year
  Sex: Female
  Weight: 82 kg

DRUGS (25)
  1. UPADACITINIB [Suspect]
     Active Substance: UPADACITINIB
     Indication: RHEUMATOID ARTHRITIS
     Route: 048
     Dates: start: 20170309, end: 20180821
  2. TREXAN [Concomitant]
     Indication: RHEUMATOID ARTHRITIS
     Route: 048
     Dates: start: 2013, end: 201507
  3. BETALOC ZOC [Concomitant]
     Indication: HYPERTENSION
     Route: 048
     Dates: start: 2009
  4. ATORVASTATIN [Concomitant]
     Active Substance: ATORVASTATIN
     Indication: HYPERCHOLESTEROLAEMIA
     Route: 048
     Dates: start: 20170116
  5. TREXAN [Concomitant]
     Route: 048
     Dates: start: 20171102, end: 20190321
  6. FOLIC ACID. [Concomitant]
     Active Substance: FOLIC ACID
     Route: 048
     Dates: start: 20160910
  7. TAPTIQOM [Concomitant]
     Active Substance: TAFLUPROST\TIMOLOL
     Indication: GLAUCOMA
     Route: 047
     Dates: start: 20171109
  8. ALLOPURINOL. [Concomitant]
     Active Substance: ALLOPURINOL
     Indication: HYPERURICAEMIA
     Route: 048
     Dates: start: 20190611, end: 20190905
  9. PLACEBO [Suspect]
     Active Substance: UNSPECIFIED INGREDIENT
     Indication: RHEUMATOID ARTHRITIS
     Route: 065
     Dates: start: 20161201, end: 20170308
  10. CARSIL [Concomitant]
     Active Substance: DIETARY SUPPLEMENT\HERBALS\MILK THISTLE
     Indication: HEPATIC ENZYME INCREASED
     Route: 048
     Dates: start: 20180712, end: 20180727
  11. ALLOPURINOL. [Concomitant]
     Active Substance: ALLOPURINOL
     Indication: HYPERURICAEMIA
     Route: 048
     Dates: start: 20190906
  12. UPADACITINIB [Suspect]
     Active Substance: UPADACITINIB
     Route: 048
     Dates: start: 20201203, end: 20210119
  13. HJERTEMAGNYL [Concomitant]
     Indication: THROMBOSIS PROPHYLAXIS
     Route: 048
     Dates: start: 2009
  14. CELEBREX [Concomitant]
     Active Substance: CELECOXIB
     Indication: RHEUMATOID ARTHRITIS
     Route: 048
     Dates: start: 20180814
  15. CARSIL [Concomitant]
     Active Substance: DIETARY SUPPLEMENT\HERBALS\MILK THISTLE
     Indication: PROPHYLAXIS
     Route: 048
     Dates: start: 20180728
  16. UPADACITINIB [Suspect]
     Active Substance: UPADACITINIB
     Indication: RHEUMATOID ARTHRITIS
     Route: 048
     Dates: start: 20180822, end: 20201112
  17. TREXAN [Concomitant]
     Route: 048
     Dates: start: 201507, end: 20160205
  18. FOLIC ACID. [Concomitant]
     Active Substance: FOLIC ACID
     Indication: VITAMIN SUPPLEMENTATION
     Route: 048
     Dates: start: 2013, end: 201602
  19. TRIPLIXAM [Concomitant]
     Active Substance: AMLODIPINE BESYLATE\INDAPAMIDE\PERINDOPRIL ARGININE
     Indication: HYPERTENSION
     Dosage: 10/10/2.5MG
     Route: 048
     Dates: start: 201608
  20. UPADACITINIB [Suspect]
     Active Substance: UPADACITINIB
     Route: 048
     Dates: start: 20201117, end: 20201124
  21. TREXAN [Concomitant]
     Route: 048
     Dates: start: 20160905, end: 20160929
  22. TREXAN [Concomitant]
     Route: 048
     Dates: start: 20160930, end: 20171101
  23. TREXAN [Concomitant]
     Route: 048
     Dates: start: 20190322
  24. GANFORT OPHTHALMIC SOLUTION [Concomitant]
     Indication: GLAUCOMA
     Route: 047
     Dates: start: 20181005
  25. LOCERYL NAIL LACQUER [Concomitant]
     Indication: NAIL DYSTROPHY
     Dosage: 1 APPLICATION
     Route: 061
     Dates: start: 20181102

REACTIONS (3)
  - Urosepsis [Recovered/Resolved]
  - Urinary tract infection [Recovered/Resolved]
  - Peripheral artery thrombosis [Recovered/Resolved]

NARRATIVE: CASE EVENT DATE: 20201109
